FAERS Safety Report 4310041-0 (Version None)
Quarter: 2004Q1

REPORT INFORMATION
  Report Type: 
  Country: None (occurrence: None)
  Receive Date: 20040301
  Receipt Date: 20040109
  Transmission Date: 20041129
  Serious: No
  Sender: FDA-Public Use
  Company Number: WAES 0401USA00730

PATIENT
  Sex: Male

DRUGS (20)
  1. ZETIA [Suspect]
     Dosage: PO
     Route: 048
  2. ADVAIR DISKUS 100/50 [Concomitant]
  3. ANUSOL HC [Concomitant]
  4. ASTELIN [Concomitant]
  5. ATACAND [Concomitant]
  6. KLOR-CON [Concomitant]
  7. LASIX [Concomitant]
  8. NASONEX [Concomitant]
  9. NIASPAN [Concomitant]
  10. PRILOSEC [Concomitant]
  11. PULMICORT [Concomitant]
  12. SINGULAIR [Concomitant]
  13. VIAGRA [Concomitant]
  14. ZYRTEC [Concomitant]
  15. ALBUTEROL [Concomitant]
  16. ASPIRIN [Concomitant]
  17. BETAMETHASONE [Concomitant]
  18. CHONDROITIN SULFATE SODIUM [Concomitant]
  19. FISH OIL (UNSPECIFIED) [Concomitant]
  20. VERAPAMIL [Concomitant]

REACTIONS (2)
  - BLOOD CREATINE PHOSPHOKINASE INCREASED [None]
  - MYALGIA [None]
